FAERS Safety Report 5014162-9 (Version None)
Quarter: 2006Q2

REPORT INFORMATION
  Report Type: 
  Country: None (occurrence: None)
  Receive Date: 20060414
  Receipt Date: 20060105
  Transmission Date: 20061013
  Serious: No
  Sender: FDA-Public Use
  Company Number: 2006SP000113

PATIENT
  Age: 59 Year
  Sex: Male
  Weight: 136.0791 kg

DRUGS (10)
  1. LUNESTA [Suspect]
     Indication: INSOMNIA
     Dosage: SEE IMAGE
     Route: 048
     Dates: start: 20051001, end: 20060105
  2. LUNESTA [Suspect]
     Indication: INSOMNIA
     Dosage: SEE IMAGE
     Route: 048
     Dates: start: 20060106, end: 20060106
  3. LUNESTA [Suspect]
     Indication: INSOMNIA
     Dosage: SEE IMAGE
     Route: 048
     Dates: start: 20060109
  4. AVANDIA [Concomitant]
  5. VERAPAMIL [Concomitant]
  6. CELEXA [Concomitant]
  7. AVAPRO [Concomitant]
  8. GLIPIZIDE [Concomitant]
  9. ATORVASTATIN CALCIUM [Concomitant]
  10. TEMAZEPAM [Concomitant]

REACTIONS (2)
  - DRUG EFFECT DECREASED [None]
  - SOMNOLENCE [None]
